FAERS Safety Report 7121855-6 (Version None)
Quarter: 2010Q4

REPORT INFORMATION
  Report Type: 
  Country: None (occurrence: None)
  Receive Date: 20101124
  Receipt Date: 20101118
  Transmission Date: 20110411
  Serious: Yes (Death)
  Sender: FDA-Public Use
  Company Number: US-ROCHE-740634

PATIENT
  Sex: Female
  Weight: 43.5 kg

DRUGS (12)
  1. BEVACIZUMAB [Suspect]
     Indication: NON-SMALL CELL LUNG CANCER STAGE IV
     Dosage: FREQUENCY: ON DAY 1 OF EVERY 21 DAY CYCLE, LAST DOSE PRIOR TO SAE ON 24 SEP 2010.
     Route: 042
     Dates: start: 20100903, end: 20101014
  2. PEMETREXED [Suspect]
     Indication: NON-SMALL CELL LUNG CANCER STAGE IV
     Dosage: FREQUENCY: ON DAY 1 OF EVERY 21 DAY CYCLE, LAST DOSE PRIOR TO SAE ON 24 SEP 2010.
     Route: 042
     Dates: start: 20100903, end: 20101014
  3. CARBOPLATIN [Suspect]
     Indication: NON-SMALL CELL LUNG CANCER STAGE IV
     Dosage: DOSE LEVEL: 6 AUC, FREQUENCY: ON DAY 1 OF EVERY 21 DAY CYCLE, LAST DOSE PRIOR TO SAE ON 24 SEP 2010.
     Route: 042
     Dates: start: 20100903, end: 20101014
  4. NYSTATIN [Concomitant]
     Dosage: MOUTHWASH
  5. ADVAIR [Concomitant]
     Dosage: INHALER
     Route: 055
  6. ZOCOR [Concomitant]
  7. PREMARIN [Concomitant]
  8. ZOLOFT [Concomitant]
  9. MEGACE [Concomitant]
  10. FOLIC ACID [Concomitant]
  11. DEXAMETHASONE [Concomitant]
  12. ZOMETA [Concomitant]

REACTIONS (2)
  - DEATH [None]
  - PNEUMOTHORAX [None]
